FAERS Safety Report 8822488 (Version 1)
Quarter: 2012Q4

REPORT INFORMATION
  Report Type: 
  Country: CH (occurrence: CH)
  Receive Date: 20121003
  Receipt Date: 20121003
  Transmission Date: 20130627
  Serious: Yes (Other)
  Sender: FDA-Public Use
  Company Number: CH-ELI_LILLY_AND_COMPANY-CH201209006109

PATIENT
  Age: 40 Year
  Sex: Female

DRUGS (3)
  1. CYMBALTA [Suspect]
     Indication: DEPRESSION
     Dosage: 30 mg, qd
  2. XANAX [Concomitant]
     Indication: DEPRESSION
     Dosage: 4 mg, qd
  3. XANAX [Concomitant]
     Dosage: 2 mg, qd

REACTIONS (1)
  - Exposure during pregnancy [Not Recovered/Not Resolved]
